FAERS Safety Report 5247247-2 (Version None)
Quarter: 2007Q1

REPORT INFORMATION
  Report Type: 
  Country: None (occurrence: None)
  Receive Date: 20070227
  Receipt Date: 20070214
  Transmission Date: 20070707
  Serious: Yes (Hospitalization, Other)
  Sender: FDA-Public Use
  Company Number: PHBS2007FR02960

PATIENT
  Age: 57 Year
  Sex: Male

DRUGS (6)
  1. CYCLOSPORINE [Suspect]
     Indication: RENAL TRANSPLANT
  2. THYMOGLOBULIN [Concomitant]
     Indication: RENAL TRANSPLANT
  3. PREDNISOLONE [Concomitant]
     Indication: RENAL TRANSPLANT
     Dosage: 0.43 MG/KG/D
  4. PREDNISOLONE [Concomitant]
     Dosage: 0.15 MG/KG/D
  5. MYCOPHENOLATE MOFETIL [Suspect]
     Indication: RENAL TRANSPLANT
  6. SIROLIMUS [Suspect]
     Indication: RENAL TRANSPLANT

REACTIONS (12)
  - ALANINE AMINOTRANSFERASE DECREASED [None]
  - BLOOD CREATININE INCREASED [None]
  - BLOOD LACTATE DEHYDROGENASE INCREASED [None]
  - BLOOD TRIGLYCERIDES INCREASED [None]
  - HAEMOGLOBIN DECREASED [None]
  - HISTIOCYTOSIS HAEMATOPHAGIC [None]
  - PANCYTOPENIA [None]
  - PLATELET COUNT DECREASED [None]
  - POLYOMAVIRUS-ASSOCIATED NEPHROPATHY [None]
  - PYREXIA [None]
  - SERUM FERRITIN INCREASED [None]
  - WHITE BLOOD CELL COUNT DECREASED [None]
